FAERS Safety Report 5690714-8 (Version None)
Quarter: 2008Q2

REPORT INFORMATION
  Report Type: 
  Country: None (occurrence: None)
  Receive Date: 20080401
  Receipt Date: 20080331
  Transmission Date: 20081010
  Serious: Yes (Other)
  Sender: FDA-Public Use
  Company Number: A0718225A

PATIENT
  Age: 62 Year
  Sex: Female
  Weight: 63.6 kg

DRUGS (12)
  1. ALLI [Suspect]
     Dates: start: 20080101, end: 20080327
  2. PREMPRO [Concomitant]
  3. LIPITOR [Concomitant]
  4. SINGULAIR [Concomitant]
  5. ACTONEL [Concomitant]
  6. MULTI-VITAMIN [Concomitant]
  7. CALCIUM [Concomitant]
  8. VITAMIN D [Concomitant]
  9. ASTELIN [Concomitant]
     Route: 045
  10. FLONASE [Concomitant]
  11. PSEUDOEPHEDRINE HCL [Concomitant]
  12. SUDAFED 12 HOUR [Concomitant]
     Dosage: 1TAB AS REQUIRED

REACTIONS (8)
  - ABDOMINAL PAIN LOWER [None]
  - ANAL HAEMORRHAGE [None]
  - FLATULENCE [None]
  - GASTROINTESTINAL PAIN [None]
  - HEADACHE [None]
  - RECTAL DISCHARGE [None]
  - RECTAL HAEMORRHAGE [None]
  - SEASONAL ALLERGY [None]
